FAERS Safety Report 17353343 (Version 2)
Quarter: 2020Q1

REPORT INFORMATION
  Report Type: Spontaneous
  Country: FR (occurrence: FR)
  Receive Date: 20200131
  Receipt Date: 20200219
  Transmission Date: 20200409
  Serious: Yes (Hospitalization)
  Sender: FDA-Public Use
  Company Number: FR-TEVA-2020-FR-1176938

PATIENT
  Age: 80 Year
  Sex: Male

DRUGS (12)
  1. BACTRIM [Concomitant]
     Active Substance: SULFAMETHOXAZOLE\TRIMETHOPRIM
     Indication: OPPORTUNISTIC INFECTION PROPHYLAXIS
     Dosage: 3 DOSAGE FORMS
     Route: 048
     Dates: start: 201809
  2. XATRAL LP 10 MG, COMPRIME A LIBERATION PROLONGEE [Concomitant]
     Active Substance: ALFUZOSIN
     Dosage: 1 DOSAGE FORM
     Route: 048
     Dates: start: 201809
  3. ZELITREX 500 MG, COMPRIME ENROBE [Concomitant]
     Active Substance: VALACYCLOVIR HYDROCHLORIDE
     Indication: OPPORTUNISTIC INFECTION PROPHYLAXIS
     Dosage: 1 DOSAGE FORM
     Route: 048
     Dates: start: 201809
  4. IMBRUVICA [Suspect]
     Active Substance: IBRUTINIB
     Indication: BING-NEEL SYNDROME
     Dosage: 2 DOSAGE FORMS
     Route: 048
     Dates: start: 201809
  5. ACIDE FOLIQUE [Concomitant]
     Active Substance: FOLIC ACID
     Dosage: 25 MG
     Route: 048
     Dates: start: 201809
  6. KARDEGIC [Concomitant]
     Active Substance: ASPIRIN DL-LYSINE
     Indication: ATRIAL FIBRILLATION
     Dosage: 1 DOSAGE FORM
     Route: 048
     Dates: end: 201910
  7. DOXORUBICINE [Suspect]
     Active Substance: DOXORUBICIN
     Indication: LYMPHOMA
     Dosage: 350 MG/M2
     Route: 041
     Dates: start: 201010, end: 201104
  8. FLECAINE [Concomitant]
     Active Substance: FLECAINIDE
     Dosage: 150 MG
     Route: 048
     Dates: end: 201910
  9. MIRTAZAPINE. [Concomitant]
     Active Substance: MIRTAZAPINE
     Dosage: 15 MG
     Route: 048
     Dates: start: 201809
  10. LEVOTHYROX 125 MICROGRAMMES, COMPRIME SECABLE [Concomitant]
     Active Substance: LEVOTHYROXINE SODIUM
     Indication: THYROIDECTOMY
     Dosage: 1 DOSAGE FORM
     Route: 048
     Dates: start: 201203
  11. ALLOPURINOL. [Concomitant]
     Active Substance: ALLOPURINOL
     Dosage: 100 MG
     Route: 048
     Dates: start: 201809
  12. ESOMEPRAZOLE. [Concomitant]
     Active Substance: ESOMEPRAZOLE MAGNESIUM
     Dosage: 20 MG
     Route: 048
     Dates: end: 201910

REACTIONS (2)
  - Arrhythmia supraventricular [Recovered/Resolved]
  - Ejection fraction decreased [Recovering/Resolving]

NARRATIVE: CASE EVENT DATE: 201910
